FAERS Safety Report 16178297 (Version 1)
Quarter: 2019Q2

REPORT INFORMATION
  Report Type: Spontaneous
  Country: PL (occurrence: PL)
  Receive Date: 20190410
  Receipt Date: 20190410
  Transmission Date: 20190711
  Serious: Yes (Hospitalization)
  Sender: FDA-Public Use
  Company Number: PL-JAZZ-2019-PL-004752

PATIENT
  Age: 13 Year
  Sex: Male
  Weight: 38.95 kg

DRUGS (1)
  1. ASPARAGINASE [Suspect]
     Active Substance: ASPARAGINASE
     Indication: LYMPHOCYTIC LEUKAEMIA
     Dosage: 37750 IU
     Route: 042
     Dates: start: 20160510, end: 20160510

REACTIONS (2)
  - Hypersensitivity [Recovered/Resolved]
  - Back pain [Recovered/Resolved]
